FAERS Safety Report 14033091 (Version 7)
Quarter: 2018Q4

REPORT INFORMATION
  Report Type: Spontaneous
  Country: US (occurrence: US)
  Receive Date: 20171002
  Receipt Date: 20181129
  Transmission Date: 20190204
  Serious: Yes (Hospitalization, Other)
  Sender: FDA-Public Use
  Company Number: US-PFIZER INC-2017422132

PATIENT
  Age: 76 Year
  Sex: Female

DRUGS (3)
  1. ARTHROTEC [Suspect]
     Active Substance: DICLOFENAC SODIUM\MISOPROSTOL
     Dosage: UNK
  2. LYRICA [Suspect]
     Active Substance: PREGABALIN
     Indication: TRIGEMINAL NEURALGIA
     Dosage: 150 MG, 2X/DAY
  3. LYRICA [Suspect]
     Active Substance: PREGABALIN
     Indication: AUTOIMMUNE HEPATITIS
     Dosage: 300 MG, 1X/DAY (300MG/DAY)

REACTIONS (11)
  - Drug dependence [Unknown]
  - Choking [Unknown]
  - Memory impairment [Unknown]
  - Autoimmune thyroiditis [Unknown]
  - Cerebrospinal fluid leakage [Unknown]
  - Trismus [Unknown]
  - Chest discomfort [Unknown]
  - Spinal cord injury [Unknown]
  - Scoliosis [Unknown]
  - Trigeminal nerve disorder [Not Recovered/Not Resolved]
  - Condition aggravated [Not Recovered/Not Resolved]
